FAERS Safety Report 10754894 (Version 1)
Quarter: 2015Q1

REPORT INFORMATION
  Report Type: Spontaneous
  Country: US (occurrence: None)
  Receive Date: 20150130
  Receipt Date: 20150130
  Transmission Date: 20150721
  Serious: Yes (Other)
  Sender: FDA-Public Use
  Company Number: None

PATIENT
  Age: 56 Year
  Sex: Male

DRUGS (6)
  1. DEXAMETHASON [Concomitant]
     Active Substance: DEXAMETHASONE
  2. PROCHLORPER [Concomitant]
  3. B-6 [Concomitant]
  4. CAPECITABINE 500 MG [Suspect]
     Active Substance: CAPECITABINE
     Indication: OESOPHAGEAL CARCINOMA
     Route: 048
     Dates: start: 20141203
  5. ENOXAPARIN [Concomitant]
     Active Substance: ENOXAPARIN
  6. ZOLPIDEM [Concomitant]
     Active Substance: ZOLPIDEM\ZOLPIDEM TARTRATE

REACTIONS (5)
  - Alopecia [None]
  - Vomiting [None]
  - Neuropathy peripheral [None]
  - Dysgeusia [None]
  - Nausea [None]
